FAERS Safety Report 6158678-0 (Version None)
Quarter: 2009Q2

REPORT INFORMATION
  Report Type: 
  Country: None (occurrence: None)
  Receive Date: 20090417
  Receipt Date: 20090408
  Transmission Date: 20091009
  Serious: Yes (Congenital Anomaly)
  Sender: FDA-Public Use
  Company Number: A0681107A

PATIENT
  Sex: Male

DRUGS (6)
  1. PAXIL [Suspect]
     Indication: DEPRESSION
     Dosage: 30MG PER DAY
     Dates: start: 19980101, end: 20040101
  2. PAXIL CR [Suspect]
     Indication: DEPRESSION
     Dosage: 30MG UNKNOWN
     Dates: start: 19980101, end: 20040101
  3. PAROXETINE HCL [Suspect]
     Indication: DEPRESSION
     Dates: start: 20030101, end: 20040101
  4. TYLENOL [Concomitant]
     Dosage: 86MG AS REQUIRED
  5. VITAMIN TAB [Concomitant]
  6. IRON [Concomitant]

REACTIONS (3)
  - CONGENITAL ANOMALY [None]
  - DRUG EXPOSURE DURING PREGNANCY [None]
  - TALIPES [None]
